FAERS Safety Report 10883258 (Version 2)
Quarter: 2015Q2

REPORT INFORMATION
  Report Type: Report from Study
  Country: TW (occurrence: TW)
  Receive Date: 20150303
  Receipt Date: 20150403
  Transmission Date: 20150821
  Serious: Yes (Other)
  Sender: FDA-Public Use
  Company Number: TW-ABBVIE-15K-153-1335863-00

PATIENT
  Age: 41 Year
  Sex: Male

DRUGS (1)
  1. HUMIRA [Suspect]
     Active Substance: ADALIMUMAB
     Indication: CROHN^S DISEASE
     Route: 058
     Dates: start: 20120918, end: 20141215

REACTIONS (3)
  - Rectal adenocarcinoma [Unknown]
  - Anal fistula [Unknown]
  - Anal cancer [Unknown]

NARRATIVE: CASE EVENT DATE: 201501
